FAERS Safety Report 5958763-X (Version None)
Quarter: 2008Q4

REPORT INFORMATION
  Report Type: 
  Country: None (occurrence: None)
  Receive Date: 20081119
  Receipt Date: 20081104
  Transmission Date: 20090506
  Serious: Yes (Other)
  Sender: FDA-Public Use
  Company Number: US-GENENTECH-271677

PATIENT

DRUGS (2)
  1. BEVACIZUMAB [Suspect]
     Indication: GLIOMA
     Dosage: 10 MG/KG, DAYS 1+15
     Route: 042
     Dates: start: 20080715
  2. IRINOTECAN HCL [Suspect]
     Indication: GLIOMA
     Dosage: 125 MG/KG, Q2W
     Route: 042
     Dates: start: 20080730

REACTIONS (1)
  - HYPERKALAEMIA [None]
